FAERS Safety Report 18047055 (Version 1)
Quarter: 2020Q3

REPORT INFORMATION
  Report Type: Spontaneous
  Country: US (occurrence: US)
  Receive Date: 20200720
  Receipt Date: 20200720
  Transmission Date: 20201103
  Serious: No
  Sender: FDA-Public Use
  Company Number: US-ROCHE-2352147

PATIENT
  Sex: Male

DRUGS (2)
  1. ATEZOLIZUMAB. [Suspect]
     Active Substance: ATEZOLIZUMAB
     Indication: PANCREATIC CARCINOMA
     Route: 042
     Dates: start: 201902
  2. PEGPH20 [Suspect]
     Active Substance: PEGVORHYALURONIDASE ALFA
     Indication: PANCREATIC CARCINOMA
     Route: 065
     Dates: start: 201902

REACTIONS (1)
  - Muscle spasms [Not Recovered/Not Resolved]

NARRATIVE: CASE EVENT DATE: 201902
